FAERS Safety Report 26135536 (Version 1)
Quarter: 2025Q4

REPORT INFORMATION
  Report Type: Spontaneous
  Country: US (occurrence: US)
  Receive Date: 20251209
  Receipt Date: 20251209
  Transmission Date: 20260117
  Serious: No
  Sender: NOVEN
  Company Number: US-NOVEN PHARMACEUTICALS, INC.-2025-NOV-US001828

PATIENT
  Age: 53 Year
  Sex: Female

DRUGS (1)
  1. MINIVELLE [Suspect]
     Active Substance: ESTRADIOL
     Indication: Product used for unknown indication
     Dosage: 0.05 MG, UNKNOWN (CURRENT BOX)
     Route: 062
     Dates: start: 20251028

REACTIONS (6)
  - Device difficult to use [Recovered/Resolved]
  - Exposure via direct contact [Recovered/Resolved]
  - Product dose omission issue [Recovered/Resolved]
  - Product administration error [Not Recovered/Not Resolved]
  - Device adhesion issue [Not Recovered/Not Resolved]
  - No adverse event [Unknown]

NARRATIVE: CASE EVENT DATE: 20251027
